FAERS Safety Report 4841918-5 (Version None)
Quarter: 2005Q4

REPORT INFORMATION
  Report Type: 
  Country: None (occurrence: None)
  Receive Date: 20051130
  Receipt Date: 20051003
  Transmission Date: 20060501
  Serious: No
  Sender: FDA-Public Use
  Company Number: US-GLAXOSMITHKLINE-A0576700A

PATIENT
  Age: 27 Year
  Sex: Male
  Weight: 61.4 kg

DRUGS (2)
  1. WELLBUTRIN XL [Suspect]
     Indication: DEPRESSION
     Dosage: 150MG PER DAY
     Route: 048
     Dates: start: 20050907
  2. ENERGY SUPPLEMENT [Concomitant]
     Indication: NUTRITIONAL SUPPORT
     Route: 048

REACTIONS (1)
  - MUSCULOSKELETAL CHEST PAIN [None]
